FAERS Safety Report 23262350 (Version 1)
Quarter: 2023Q4

REPORT INFORMATION
  Report Type: Spontaneous
  Country: US (occurrence: US)
  Receive Date: 20231205
  Receipt Date: 20231205
  Transmission Date: 20240109
  Serious: Yes (Hospitalization, Other)
  Sender: FDA-Public Use
  Company Number: US-OTSUKA-2023_031201

PATIENT
  Age: 56 Year
  Sex: Female
  Weight: 72.57 kg

DRUGS (1)
  1. ABILIFY [Suspect]
     Active Substance: ARIPIPRAZOLE
     Indication: Depression
     Dosage: 20 MG, QD (BED TIME)
     Route: 065

REACTIONS (4)
  - Swollen tongue [Unknown]
  - Tardive dyskinesia [Unknown]
  - Speech disorder [Unknown]
  - Product label issue [Unknown]

NARRATIVE: CASE EVENT DATE: 20231115
